FAERS Safety Report 25647031 (Version 1)
Quarter: 2025Q3

REPORT INFORMATION
  Report Type: Report from Study
  Country: JP (occurrence: JP)
  Receive Date: 20250806
  Receipt Date: 20250806
  Transmission Date: 20251021
  Serious: Yes (Hospitalization, Other)
  Sender: TAKEDA
  Company Number: JP-TAKEDA-2025TJP004558

PATIENT
  Age: 43 Year
  Sex: Female
  Weight: 45.9 kg

DRUGS (7)
  1. MARIBAVIR [Suspect]
     Active Substance: MARIBAVIR
     Indication: Immunosuppressant drug level increased
     Dates: start: 20250420, end: 20250507
  2. TACROLIMUS [Suspect]
     Active Substance: TACROLIMUS
     Indication: Kidney transplant rejection
  3. TACROLIMUS [Suspect]
     Active Substance: TACROLIMUS
     Dates: start: 20250502, end: 20250507
  4. TACROLIMUS [Suspect]
     Active Substance: TACROLIMUS
  5. EVEROLIMUS [Suspect]
     Active Substance: EVEROLIMUS
     Indication: Renal transplant
     Dosage: 1.75 MILLIGRAM, BID
     Dates: start: 20250222
  6. EVEROLIMUS [Suspect]
     Active Substance: EVEROLIMUS
     Dates: start: 20250502, end: 20250507
  7. EVEROLIMUS [Suspect]
     Active Substance: EVEROLIMUS

REACTIONS (3)
  - Acute kidney injury [Recovered/Resolved]
  - Immunosuppressant drug level increased [Recovered/Resolved]
  - Off label use [Unknown]

NARRATIVE: CASE EVENT DATE: 20250420
